FAERS Safety Report 14713060 (Version 2)
Quarter: 2018Q2

REPORT INFORMATION
  Report Type: Spontaneous
  Country: US (occurrence: US)
  Receive Date: 20180404
  Receipt Date: 20180423
  Transmission Date: 20180711
  Serious: No
  Sender: FDA-Public Use
  Company Number: US-PFIZER INC-2018134593

PATIENT
  Sex: Female
  Weight: 80 kg

DRUGS (2)
  1. METHOTREXATE SODIUM. [Suspect]
     Active Substance: METHOTREXATE SODIUM
     Dosage: UNK
  2. SIMPONI ARIA [Suspect]
     Active Substance: GOLIMUMAB
     Dosage: UNK

REACTIONS (1)
  - Drug effect incomplete [Unknown]
